FAERS Safety Report 6750205-X (Version None)
Quarter: 2010Q2

REPORT INFORMATION
  Report Type: 
  Country: None (occurrence: None)
  Receive Date: 20100601
  Receipt Date: 20100520
  Transmission Date: 20101027
  Serious: Yes (Other)
  Sender: FDA-Public Use
  Company Number: US-PFIZER INC-2010042808

PATIENT
  Sex: Female

DRUGS (22)
  1. GABAPENTIN [Suspect]
     Indication: DIABETIC NEUROPATHY
     Dosage: 2 CAPSULES, 3X/DAY
     Route: 048
     Dates: start: 20040101
  2. ZYRTEC [Suspect]
     Indication: HYPERSENSITIVITY
     Dosage: 10 MG, 1X/DAY
     Route: 048
     Dates: start: 20090101
  3. METFORMIN HCL [Suspect]
     Indication: DIABETES MELLITUS
     Dosage: 500 MG, DAILY
     Route: 048
  4. SIMVASTATIN [Suspect]
     Indication: DRUG USE FOR UNKNOWN INDICATION
     Dosage: UNK
     Route: 048
  5. VICODIN [Suspect]
     Indication: ARTHRALGIA
     Dosage: 7.5MG/325MG EVERY FOUR HOURS
     Route: 048
     Dates: start: 20060101
  6. ZANAFLEX [Suspect]
     Indication: MUSCLE SPASMS
     Dosage: 2 MG, 2X/DAY
     Route: 048
     Dates: start: 20090101
  7. VALSARTAN [Suspect]
     Indication: HYPERTENSION
     Dosage: 160 MG, DAILY
     Route: 048
     Dates: start: 20020101
  8. BUPROPION [Suspect]
     Indication: DEPRESSION
     Dosage: 300 MG, DAILY
     Route: 048
  9. LOZOL [Suspect]
     Indication: FLUID RETENTION
     Dosage: 1.25 MG, DAILY
     Route: 048
     Dates: start: 20020101
  10. METFORMIN HYDROCHLORIDE/SITAGLIPTIN [Suspect]
     Indication: DIABETES MELLITUS
     Dosage: 50/500MG DAILY
     Route: 048
  11. KLONOPIN [Suspect]
     Indication: ANXIETY
     Dosage: 0.5 MG, 2X/DAY
     Route: 048
  12. PRILOSEC [Suspect]
     Indication: GASTROOESOPHAGEAL REFLUX DISEASE
     Dosage: 20 MG, 2X/DAY
     Route: 048
  13. CARAFATE [Suspect]
     Indication: GASTROOESOPHAGEAL REFLUX DISEASE
     Dosage: 1 G, 2X/DAY
     Route: 048
  14. AGGRENOX [Suspect]
     Indication: DRUG USE FOR UNKNOWN INDICATION
     Dosage: UNK, 2X/DAY
     Route: 048
     Dates: start: 20091201
  15. FLONASE [Suspect]
     Indication: HYPERSENSITIVITY
     Dosage: 50MCG TWO SPRAYS PER NOSTRIL DAILY
     Route: 045
  16. FLOVENT [Suspect]
     Indication: ASTHMA
     Dosage: 110MCG 2 PUFFS 2X/ DAY
  17. VENTOLIN [Suspect]
     Indication: ASTHMA
     Dosage: 90MCG TWO PUFFS EVERY TWO HOURS
  18. IMITREX [Suspect]
     Indication: MIGRAINE
     Dosage: 100 MG, AS NEEDED
     Route: 048
  19. NITROLINGUAL [Suspect]
     Indication: CHEST PAIN
     Dosage: 0.4MG SPRAY AS NEEDED
     Route: 050
  20. EPIPEN [Suspect]
     Indication: HYPERSENSITIVITY
     Dosage: UNK
     Route: 062
  21. LORTAB [Suspect]
     Indication: DRUG USE FOR UNKNOWN INDICATION
     Dosage: UNK
     Route: 048
  22. MULTI-VITAMINS [Suspect]
     Indication: DRUG USE FOR UNKNOWN INDICATION
     Dosage: UNK
     Route: 048

REACTIONS (2)
  - CARDIAC DISORDER [None]
  - MEMORY IMPAIRMENT [None]
